FAERS Safety Report 8469290 (Version 4)
Quarter: 2013Q2

REPORT INFORMATION
  Report Type: Spontaneous
  Country: US (occurrence: US)
  Receive Date: 20120321
  Receipt Date: 20130603
  Transmission Date: 20140414
  Serious: Yes (Other)
  Sender: FDA-Public Use
  Company Number: US-PFIZER INC-2012071019

PATIENT
  Sex: Male

DRUGS (3)
  1. LIPITOR [Suspect]
     Dosage: UNK
  2. LIPITOR [Suspect]
     Dosage: 40 MG, 3X/DAY
  3. TORSEMIDE [Concomitant]
     Dosage: UNK

REACTIONS (6)
  - Cardiac disorder [Unknown]
  - Gallbladder disorder [Unknown]
  - Cardiac disorder [Unknown]
  - Arthropathy [Unknown]
  - Oesophageal disorder [Unknown]
  - Abdominal hernia [Unknown]
